FAERS Safety Report 17891943 (Version 1)
Quarter: 2020Q2

REPORT INFORMATION
  Report Type: Report from Study
  Country: CA (occurrence: CA)
  Receive Date: 20200612
  Receipt Date: 20200612
  Transmission Date: 20200714
  Serious: Yes (Other)
  Sender: FDA-Public Use
  Company Number: CA-JNJFOC-20200608823

PATIENT
  Sex: Female
  Weight: 73.6 kg

DRUGS (1)
  1. REMICADE [Suspect]
     Active Substance: INFLIXIMAB
     Indication: CROHN^S DISEASE
     Dosage: ENTYVIO PRESCRIBED
     Route: 042
     Dates: start: 20120726, end: 20191031

REACTIONS (1)
  - Lupus-like syndrome [Not Recovered/Not Resolved]
